FAERS Safety Report 8277489-3 (Version None)
Quarter: 2012Q2

REPORT INFORMATION
  Report Type: 
  Country: None (occurrence: None)
  Receive Date: 20120412
  Receipt Date: 20120410
  Transmission Date: 20120825
  Serious: Yes (Death)
  Sender: FDA-Public Use
  Company Number: PHHY2012US030605

PATIENT
  Age: 42 Year
  Sex: Female

DRUGS (6)
  1. IMIPENEM/CILASTATIN [Concomitant]
  2. CUBICIN [Suspect]
     Indication: ALCALIGENES INFECTION
     Dosage: 6 MG/KG, QD
     Route: 042
  3. GENTAMICIN [Suspect]
     Indication: MENINGITIS
     Dosage: 2 MG/KG, EVERY 8 HOURS
  4. VANCOMYCIN [Concomitant]
  5. RIFAMPIN [Suspect]
     Dosage: 600 MG, QD
     Route: 048
  6. CUBICIN [Suspect]
     Indication: STAPHYLOCOCCAL INFECTION

REACTIONS (2)
  - MENINGITIS BACTERIAL [None]
  - GENERAL PHYSICAL HEALTH DETERIORATION [None]
